FAERS Safety Report 9237414 (Version 3)
Quarter: 2013Q2

REPORT INFORMATION
  Report Type: Spontaneous
  Country: JP (occurrence: JP)
  Receive Date: 20130417
  Receipt Date: 20130529
  Transmission Date: 20140414
  Serious: Yes (Other)
  Sender: FDA-Public Use
  Company Number: JP-B.I. PHARMACEUTICALS,INC./RIDGEFIELD-2013-BI-10526NB

PATIENT
  Age: 76 Year
  Sex: Male
  Weight: 50 kg

DRUGS (3)
  1. MICARDIS [Suspect]
     Indication: HYPERTENSION
     Dosage: 40 MG
     Route: 048
     Dates: start: 20130405, end: 20130412
  2. CONIEL [Suspect]
     Indication: HYPERTENSION
     Dosage: 8 MG
     Route: 048
     Dates: start: 20130404, end: 20130412
  3. CONIEL [Suspect]
     Dosage: 8 MG
     Route: 048
     Dates: start: 20130408, end: 20130412

REACTIONS (2)
  - Loss of consciousness [Recovered/Resolved]
  - Blood pressure decreased [Recovered/Resolved]
